FAERS Safety Report 8501399 (Version 3)
Quarter: 2013Q1

REPORT INFORMATION
  Report Type: Report from Study
  Country: JP (occurrence: JP)
  Receive Date: 20120410
  Receipt Date: 20130207
  Transmission Date: 20140127
  Serious: Yes (Hospitalization)
  Sender: FDA-Public Use
  Company Number: JP-VERTEX PHARMACEUTICALS INC.-AE-2012-004798

PATIENT
  Age: 55 Year
  Sex: Female

DRUGS (6)
  1. VX-950 (TELAPREVIR) [Suspect]
     Indication: CHRONIC HEPATITIS C
     Dosage: 2250 MG, QD
     Route: 048
     Dates: start: 20120126, end: 20120205
  2. PEGINTRON [Suspect]
     Indication: CHRONIC HEPATITIS C
     Dosage: 1.5 ?G/KG, QW
     Route: 058
     Dates: start: 20120126, end: 20120202
  3. REBETOL [Suspect]
     Indication: CHRONIC HEPATITIS C
     Dosage: 600 MG, QD
     Route: 048
     Dates: start: 20120126, end: 20120205
  4. GLYCYRON [Concomitant]
     Dosage: 6 DF, QD
     Route: 048
     Dates: end: 20120405
  5. PARIET [Concomitant]
     Dosage: 10 MG, QD
     Dates: end: 20120301
  6. URSO [Concomitant]
     Dosage: 6 DF, QD
     Route: 048
     Dates: start: 20120405

REACTIONS (1)
  - Drug eruption [Recovered/Resolved]
